FAERS Safety Report 9407140 (Version 1)
Quarter: 2013Q3

REPORT INFORMATION
  Report Type: Spontaneous
  Country: JP (occurrence: JP)
  Receive Date: 20130718
  Receipt Date: 20130718
  Transmission Date: 20140515
  Serious: Yes (Other)
  Sender: FDA-Public Use
  Company Number: PHHY2013JP075374

PATIENT
  Age: 10 Year
  Sex: Female

DRUGS (3)
  1. VALPROIC ACID [Suspect]
     Indication: EPILEPSY
     Route: 048
  2. CLOBAZAM [Suspect]
     Indication: EPILEPSY
     Route: 048
  3. LAMOTRIGINE [Suspect]
     Indication: EPILEPSY

REACTIONS (3)
  - Cerebral salt-wasting syndrome [Unknown]
  - Mental impairment [Unknown]
  - Petit mal epilepsy [Unknown]
